FAERS Safety Report 7102648-2 (Version None)
Quarter: 2010Q4

REPORT INFORMATION
  Report Type: 
  Country: None (occurrence: None)
  Receive Date: 20101115
  Receipt Date: 20101109
  Transmission Date: 20110411
  Serious: Yes (Death, Hospitalization)
  Sender: FDA-Public Use
  Company Number: US-ROCHE-740777

PATIENT
  Sex: Male
  Weight: 86.6 kg

DRUGS (24)
  1. BEVACIZUMAB [Suspect]
     Indication: NON-SMALL CELL LUNG CANCER
     Dosage: LAST DOSE PRIOR TO SAE 16 MARCH 2010
     Route: 042
     Dates: start: 20100202, end: 20100413
  2. BEVACIZUMAB [Suspect]
     Route: 042
     Dates: start: 20100504, end: 20100525
  3. PEMETREXED [Suspect]
     Indication: NON-SMALL CELL LUNG CANCER
     Dosage: LAST DOSE PRIOR TO SAE 16 MARCH 2010, PEMETREXED DISODIUM
     Route: 042
     Dates: start: 20100202, end: 20100413
  4. PEMETREXED [Suspect]
     Route: 042
     Dates: start: 20100413, end: 20100413
  5. PEMETREXED [Suspect]
     Route: 042
     Dates: start: 20100504, end: 20100525
  6. CARBOPLATIN [Suspect]
     Indication: NON-SMALL CELL LUNG CANCER
     Dosage: 6 AUC
     Route: 042
     Dates: start: 20100202
  7. CARBOPLATIN [Suspect]
     Dosage: 4.5 AUC
     Route: 042
  8. SIMVASTATIN [Concomitant]
  9. DILTIAZEM [Concomitant]
  10. PRILOSEC [Concomitant]
  11. ALLOPURINOL [Concomitant]
  12. TAMSULOSIN HYDROCHLORIDE [Concomitant]
     Dosage: REPORTED AS FLOMAX
     Dates: start: 20091201
  13. FOLIC ACID [Concomitant]
     Dates: start: 20100121
  14. CYANOCOBALAMIN [Concomitant]
     Dates: start: 20100120
  15. IRON [Concomitant]
     Dates: start: 20091230
  16. POTASSIUM GLUCONATE TAB [Concomitant]
     Dates: start: 20090101
  17. SAM-E [Concomitant]
     Dates: start: 20050101
  18. MEGACE [Concomitant]
     Dates: start: 20100129
  19. SENOKOT [Concomitant]
     Dosage: DOCUSATE SODIUM/SENNA ALEXANDRINA
     Dates: start: 20100223
  20. ATENOLOL [Concomitant]
     Dates: start: 20100213
  21. CHERATUSSIN [Concomitant]
     Dosage: DRUG NAME AS CHERATUSSIN
     Dates: start: 20100309
  22. VITAMIN B-12 [Concomitant]
  23. IBUPROFEN [Concomitant]
     Dates: start: 20070101
  24. POTASSIUM CHLORIDE [Concomitant]
     Dates: start: 20100406

REACTIONS (8)
  - ABDOMINAL DISTENSION [None]
  - BILE DUCT OBSTRUCTION [None]
  - DEATH [None]
  - DECREASED APPETITE [None]
  - FATIGUE [None]
  - HYPERBILIRUBINAEMIA [None]
  - PLATELET COUNT DECREASED [None]
  - QUALITY OF LIFE DECREASED [None]
